FAERS Safety Report 16183783 (Version 2)
Quarter: 2019Q2

REPORT INFORMATION
  Report Type: Spontaneous
  Country: US (occurrence: US)
  Receive Date: 20190411
  Receipt Date: 20190413
  Transmission Date: 20190711
  Serious: Yes (Hospitalization, Disabling, Other)
  Sender: FDA-Public Use
  Company Number: US-009507513-1904USA004013

PATIENT
  Sex: Female

DRUGS (6)
  1. HAEMOPHILUS B CONJUGATE VACCINE (MENINGOCOCCAL PROTEIN CONJ) [Suspect]
     Active Substance: HAEMOPHILUS B CONJUGATE VACCINE
     Indication: PROPHYLAXIS
     Route: 065
  2. M-M-R II [Suspect]
     Active Substance: MEASLES VIRUS STRAIN ENDERS^ ATTENUATED EDMONSTON LIVE ANTIGEN\MUMPS VIRUS STRAIN B LEVEL JERYL LYNN LIVE ANTIGEN\RUBELLA VIRUS STRAIN WISTAR RA 27/3 LIVE ANTIGEN
     Indication: PROPHYLAXIS
     Route: 065
     Dates: start: 20130213
  3. STERILE DILUENT (WATER) [Suspect]
     Active Substance: WATER
     Indication: PROPHYLAXIS
     Route: 065
  4. HEPATITIS A VACCINE, INACTIVATED [Suspect]
     Active Substance: HEPATITIS A VACCINE, INACTIVATED
     Indication: PROPHYLAXIS
     Route: 065
  5. VARIVAX [Suspect]
     Active Substance: VARICELLA-ZOSTER VIRUS STRAIN OKA/MERCK LIVE ANTIGEN
     Indication: PROPHYLAXIS
     Route: 065
     Dates: start: 20130213
  6. PREVNAR [Suspect]
     Active Substance: PNEUMOCOCCAL 7-VALENT CONJUGATE VACCINE (DIPHTHERIA CRM197 PROTEIN)
     Indication: PROPHYLAXIS

REACTIONS (9)
  - Cortical visual impairment [Not Recovered/Not Resolved]
  - Respiratory arrest [Recovered/Resolved]
  - Brain injury [Not Recovered/Not Resolved]
  - Hypotonia [Not Recovered/Not Resolved]
  - Encephalopathy [Not Recovered/Not Resolved]
  - Seizure [Not Recovered/Not Resolved]
  - Renal failure [Not Recovered/Not Resolved]
  - Inappropriate schedule of product administration [Unknown]
  - Cardiac arrest [Recovered/Resolved]

NARRATIVE: CASE EVENT DATE: 201302
